FAERS Safety Report 5353032-3 (Version None)
Quarter: 2007Q2

REPORT INFORMATION
  Report Type: 
  Country: None (occurrence: None)
  Receive Date: 20070611
  Receipt Date: 20070531
  Transmission Date: 20071010
  Serious: Yes (Other)
  Sender: FDA-Public Use
  Company Number: FR-PFIZER INC-2007029337

PATIENT
  Sex: Male
  Weight: 85 kg

DRUGS (6)
  1. LYRICA [Suspect]
     Indication: NEURALGIA
     Route: 048
  2. NEURONTIN [Suspect]
  3. LOXEN [Interacting]
  4. LASIX [Interacting]
  5. STILNOX [Interacting]
  6. NEXIUM [Interacting]

REACTIONS (8)
  - AGGRESSION [None]
  - DEPRESSED MOOD [None]
  - DRUG INEFFECTIVE [None]
  - DRUG INTERACTION [None]
  - HALLUCINATION, VISUAL [None]
  - IRRITABILITY [None]
  - NERVOUS SYSTEM DISORDER [None]
  - SUICIDAL IDEATION [None]
